FAERS Safety Report 24673931 (Version 1)
Quarter: 2024Q4

REPORT INFORMATION
  Report Type: Spontaneous
  Country: JP (occurrence: JP)
  Receive Date: 20241128
  Receipt Date: 20241128
  Transmission Date: 20250115
  Serious: Yes (Hospitalization, Disabling, Other)
  Sender: RANBAXY
  Company Number: JP-SUN PHARMACEUTICAL INDUSTRIES LTD-2024R1-481429

PATIENT
  Sex: Female

DRUGS (2)
  1. METHOTREXATE [Suspect]
     Active Substance: METHOTREXATE
     Indication: Polychondritis
     Dosage: UNK
     Route: 065
  2. PREDNISOLONE [Suspect]
     Active Substance: PREDNISOLONE
     Indication: Polychondritis
     Dosage: 14 MILLIGRAM, DAILY
     Route: 065

REACTIONS (6)
  - Dyspnoea [Unknown]
  - Disease recurrence [Unknown]
  - Central obesity [Unknown]
  - Compression fracture [Unknown]
  - Muscular weakness [Unknown]
  - Gait disturbance [Unknown]
